FAERS Safety Report 4843924-3 (Version None)
Quarter: 2005Q4

REPORT INFORMATION
  Report Type: 
  Country: None (occurrence: None)
  Receive Date: 20051202
  Receipt Date: 20050512
  Transmission Date: 20060501
  Serious: No
  Sender: FDA-Public Use
  Company Number: US-GLAXOSMITHKLINE-A0558348A

PATIENT
  Sex: Female

DRUGS (2)
  1. AUGMENTIN [Suspect]
     Indication: SINUSITIS
     Dosage: 500MG PER DAY
     Route: 048
     Dates: start: 20050510, end: 20050512
  2. MULTI-VITAMIN [Concomitant]

REACTIONS (1)
  - RASH MACULAR [None]
